FAERS Safety Report 4262961-3 (Version None)
Quarter: 2004Q1

REPORT INFORMATION
  Report Type: 
  Country: None (occurrence: None)
  Receive Date: 20040102
  Receipt Date: 20040102
  Transmission Date: 20041129
  Serious: Yes (Hospitalization)
  Sender: FDA-Public Use
  Company Number: None

PATIENT
  Age: 46 Year
  Sex: Male
  Weight: 86.1834 kg

DRUGS (3)
  1. GEMCITABINE [Suspect]
     Indication: PANCREATIC CARCINOMA
     Dosage: 150 MG, WKLY X6, IV
     Route: 042
     Dates: start: 20031023, end: 20031126
  2. TAXOL [Suspect]
     Indication: PANCREATIC CARCINOMA
     Dosage: 80 MG, WKLY X 6, IV
     Route: 042
     Dates: start: 20031023, end: 20031126
  3. RADIATION THERAPY [Concomitant]

REACTIONS (6)
  - ABDOMINAL PAIN [None]
  - DEHYDRATION [None]
  - LOOSE STOOLS [None]
  - NAUSEA [None]
  - VOMITING [None]
  - WEIGHT DECREASED [None]
